FAERS Safety Report 13909604 (Version 1)
Quarter: 2017Q3

REPORT INFORMATION
  Report Type: Spontaneous
  Country: US (occurrence: US)
  Receive Date: 20170828
  Receipt Date: 20170828
  Transmission Date: 20171127
  Serious: No
  Sender: FDA-Public Use
  Company Number: US-PFIZER INC-2017367153

PATIENT
  Age: 35 Year
  Sex: Female
  Weight: 113.4 kg

DRUGS (2)
  1. GABAPENTIN. [Suspect]
     Active Substance: GABAPENTIN
     Indication: FIBROMYALGIA
     Dosage: 300 MG, 3X/DAY
     Route: 048
     Dates: start: 2016, end: 2017
  2. IBUPROFEN. [Suspect]
     Active Substance: IBUPROFEN
     Indication: FIBROMYALGIA

REACTIONS (3)
  - Fibromyalgia [Not Recovered/Not Resolved]
  - Drug ineffective for unapproved indication [Not Recovered/Not Resolved]
  - Condition aggravated [Not Recovered/Not Resolved]

NARRATIVE: CASE EVENT DATE: 2016
